FAERS Safety Report 9344720 (Version 1)
Quarter: 2013Q2

REPORT INFORMATION
  Report Type: Spontaneous
  Country: IT (occurrence: IT)
  Receive Date: 20130612
  Receipt Date: 20130612
  Transmission Date: 20140414
  Serious: Yes (Other)
  Sender: FDA-Public Use
  Company Number: IT-PFIZER INC-2013173523

PATIENT
  Age: 74 Year
  Sex: Male

DRUGS (7)
  1. MEDROL [Suspect]
     Indication: ARTHRITIS
     Dosage: 1 DF, DAILY
     Route: 048
     Dates: start: 20130601, end: 20130604
  2. RAMIPRIL [Concomitant]
     Indication: HYPERTENSION
     Dosage: 10 MG
     Route: 048
  3. METFORMIN [Concomitant]
     Indication: TYPE 2 DIABETES MELLITUS
     Dosage: UNK
  4. PROVISACOR [Concomitant]
     Dosage: UNK
  5. CARDIOASPIRIN [Concomitant]
     Dosage: 1 DF
  6. OMNIC [Concomitant]
     Dosage: UNK
  7. TENORMIN [Concomitant]
     Dosage: 0.5 DF

REACTIONS (1)
  - Hypertensive crisis [Recovering/Resolving]
